FAERS Safety Report 17290773 (Version 2)
Quarter: 2020Q1

REPORT INFORMATION
  Report Type: Spontaneous
  Country: GB (occurrence: GB)
  Receive Date: 20200121
  Receipt Date: 20200226
  Transmission Date: 20200409
  Serious: Yes (Hospitalization, Other)
  Sender: FDA-Public Use
  Company Number: GB-AMGEN-GBRSP2020009184

PATIENT
  Age: 58 Year
  Sex: Male
  Weight: 76 kg

DRUGS (1)
  1. ENBREL [Suspect]
     Active Substance: ETANERCEPT
     Indication: PSORIATIC ARTHROPATHY
     Dosage: 50 MILLIGRAM, Q3WK
     Route: 065
     Dates: start: 2018

REACTIONS (6)
  - Haemorrhage [Recovered/Resolved]
  - Musculoskeletal stiffness [Recovered/Resolved]
  - Off label use [Unknown]
  - Headache [Recovered/Resolved]
  - Blood cholesterol abnormal [Unknown]
  - Blood pressure increased [Recovered/Resolved]

NARRATIVE: CASE EVENT DATE: 201902
